FAERS Safety Report 19111316 (Version 1)
Quarter: 2021Q2

REPORT INFORMATION
  Report Type: Spontaneous
  Country: US (occurrence: US)
  Receive Date: 20210409
  Receipt Date: 20210409
  Transmission Date: 20210717
  Serious: No
  Sender: FDA-Public Use
  Company Number: US-IGSA-BIG0013371

PATIENT
  Age: 15 Year
  Sex: Male
  Weight: 78.4 kg

DRUGS (1)
  1. GAMUNEX?C [Suspect]
     Active Substance: HUMAN IMMUNOGLOBULIN G
     Indication: MYOCARDITIS
     Dosage: 80 GRAM, TOTAL
     Route: 042
     Dates: start: 20210209, end: 20210209

REACTIONS (4)
  - Flushing [Unknown]
  - Urticaria [Unknown]
  - Chills [Unknown]
  - Pyrexia [Unknown]

NARRATIVE: CASE EVENT DATE: 20210209
